FAERS Safety Report 8184817-6 (Version None)
Quarter: 2012Q1

REPORT INFORMATION
  Report Type: 
  Country: None (occurrence: None)
  Receive Date: 20120305
  Receipt Date: 20120223
  Transmission Date: 20120608
  Serious: Yes (Hospitalization)
  Sender: FDA-Public Use
  Company Number: US-BAYER-2011-102118

PATIENT
  Age: 45 Year
  Sex: Female
  Weight: 109 kg

DRUGS (4)
  1. TYLENOL-500 [Concomitant]
     Indication: PAIN
     Dosage: UNK UNK, PRN
  2. YAZ [Suspect]
     Dosage: UNK
     Route: 048
     Dates: start: 20090101, end: 20090921
  3. YAZ [Suspect]
     Dosage: UNK
     Dates: start: 20090101, end: 20090921
  4. VITAMIN TAB [Concomitant]
     Dosage: UNK UNK, QD

REACTIONS (10)
  - PULMONARY EMBOLISM [None]
  - MENTAL DISORDER [None]
  - INJURY [None]
  - EMOTIONAL DISTRESS [None]
  - LOSS OF CONSCIOUSNESS [None]
  - HYPOXIA [None]
  - PAIN [None]
  - DEEP VEIN THROMBOSIS [None]
  - FEAR OF DISEASE [None]
  - FEAR OF DEATH [None]
